FAERS Safety Report 5828215-6 (Version None)
Quarter: 2008Q3

REPORT INFORMATION
  Report Type: 
  Country: None (occurrence: None)
  Receive Date: 20080729
  Receipt Date: 20080714
  Transmission Date: 20090109
  Serious: Yes (Hospitalization)
  Sender: FDA-Public Use
  Company Number: 2008S1012375

PATIENT
  Age: 60 Year
  Sex: Male
  Weight: 63.6 kg

DRUGS (9)
  1. HYDROCHLOROTHIAZIDE [Suspect]
     Dosage: ORAL
     Route: 048
     Dates: start: 20070929, end: 20071012
  2. LISINOPRIL [Suspect]
     Dosage: ORAL
     Route: 048
     Dates: start: 20070928, end: 20071012
  3. ANIDULAFUNGIN [Suspect]
     Indication: SYSTEMIC CANDIDA
     Dosage: 100 MG; DAILY
     Dates: start: 20070926, end: 20070930
  4. FLUCONAZOLE [Suspect]
     Indication: SYSTEMIC CANDIDA
     Dosage: 400 MG; DAILY; ORAL
     Route: 048
     Dates: start: 20071001, end: 20071011
  5. NIFEDIPINE [Suspect]
     Dosage: ORAL
     Route: 048
     Dates: start: 20070720, end: 20071012
  6. METHADONE (CON.) [Concomitant]
  7. FOLIC ACID (CON.) [Concomitant]
  8. THIAMINE (CON.) [Concomitant]
  9. SERTRALINE (CON.) [Concomitant]

REACTIONS (4)
  - BLOOD SODIUM DECREASED [None]
  - DEHYDRATION [None]
  - HYPOTENSION [None]
  - RENAL FAILURE ACUTE [None]
